FAERS Safety Report 22331576 (Version 1)
Quarter: 2023Q2

REPORT INFORMATION
  Report Type: Spontaneous
  Country: US (occurrence: None)
  Receive Date: 20230516
  Receipt Date: 20230516
  Transmission Date: 20230721
  Serious: Yes (Hospitalization)
  Sender: FDA-Public Use
  Company Number: None

PATIENT
  Age: 73 Year
  Sex: Male
  Weight: 106.1 kg

DRUGS (19)
  1. VENETOCLAX [Suspect]
     Active Substance: VENETOCLAX
     Indication: Mantle cell lymphoma
     Dosage: FREQUENCY : DAILY;?
     Route: 048
     Dates: start: 20230413, end: 20230512
  2. Rituximab 900mg [Concomitant]
     Dates: start: 20230413
  3. ALLOPURINOL [Concomitant]
     Active Substance: ALLOPURINOL
     Dates: start: 20230410
  4. ATORVASTATIN [Concomitant]
     Active Substance: ATORVASTATIN
  5. bystolic 20mg [Concomitant]
  6. ELIQUIS [Concomitant]
     Active Substance: APIXABAN
  7. ERGOCALCIFEROL [Concomitant]
     Active Substance: ERGOCALCIFEROL
  8. GLIPIZIDE [Concomitant]
     Active Substance: GLIPIZIDE
  9. LISINOPRIL [Concomitant]
     Active Substance: LISINOPRIL
  10. MAGNESIUM OXIDE 400MG [Concomitant]
     Active Substance: MAGNESIUM OXIDE
  11. nifdipine CC 90mg [Concomitant]
  12. nitroglycerin 0.4mg [Concomitant]
  13. PROTONIX [Concomitant]
     Active Substance: PANTOPRAZOLE SODIUM
  14. XANAX [Concomitant]
     Active Substance: ALPRAZOLAM
  15. ASPIRIN [Concomitant]
     Active Substance: ASPIRIN
  16. INSULIN GLARGINE [Concomitant]
     Active Substance: INSULIN GLARGINE
  17. METAMUCIL [Concomitant]
     Active Substance: PLANTAGO SEED
  18. PROBIOTICS NOS [Concomitant]
     Active Substance: PROBIOTICS NOS
  19. TYLENOL [Concomitant]
     Active Substance: ACETAMINOPHEN

REACTIONS (5)
  - Chest pain [None]
  - Troponin increased [None]
  - Acute myocardial infarction [None]
  - Vascular stent stenosis [None]
  - Therapy interrupted [None]

NARRATIVE: CASE EVENT DATE: 20230512
